FAERS Safety Report 7201986-2 (Version None)
Quarter: 2010Q4

REPORT INFORMATION
  Report Type: 
  Country: None (occurrence: None)
  Receive Date: 20101229
  Receipt Date: 20101206
  Transmission Date: 20110411
  Serious: Yes (Hospitalization, Other)
  Sender: FDA-Public Use
  Company Number: CA-ABBOTT-10P-028-0685565-00

PATIENT
  Weight: 60 kg

DRUGS (2)
  1. HUMIRA [Suspect]
     Indication: RHEUMATOID ARTHRITIS
     Route: 058
     Dates: start: 20090801, end: 20100226
  2. METHOTREXATE [Concomitant]
     Indication: PRODUCT USED FOR UNKNOWN INDICATION

REACTIONS (9)
  - BACK PAIN [None]
  - BONE GRAFT [None]
  - BONE NEOPLASM [None]
  - FATIGUE [None]
  - LOCALISED INFECTION [None]
  - MULTIPLE MYELOMA [None]
  - NEOPLASM [None]
  - NIGHT SWEATS [None]
  - PLASMACYTOMA [None]
